FAERS Safety Report 9882099 (Version 1)
Quarter: 2014Q1

REPORT INFORMATION
  Report Type: Spontaneous
  Country: US (occurrence: US)
  Receive Date: 20140207
  Receipt Date: 20140207
  Transmission Date: 20141002
  Serious: Yes (Other)
  Sender: FDA-Public Use
  Company Number: US-BAYER-2014-018159

PATIENT
  Age: 32 Year
  Sex: Female

DRUGS (1)
  1. MIRENA [Suspect]
     Dosage: 20 MCG/24HR, CONT
     Route: 015
     Dates: start: 200508

REACTIONS (10)
  - Pregnancy with contraceptive device [None]
  - Drug ineffective [None]
  - Device dislocation [None]
  - Foetal malposition [None]
  - Oligomenorrhoea [None]
  - Abdominal pain [None]
  - Dyspareunia [None]
  - Injury [None]
  - Pain [None]
  - Emotional distress [None]
